FAERS Safety Report 5958133-4 (Version None)
Quarter: 2008Q4

REPORT INFORMATION
  Report Type: 
  Country: None (occurrence: None)
  Receive Date: 20081117
  Receipt Date: 20081112
  Transmission Date: 20090506
  Serious: Yes (Other)
  Sender: FDA-Public Use
  Company Number: 1000001654

PATIENT
  Age: 55 Year
  Sex: Female

DRUGS (1)
  1. CELEXA [Suspect]
     Indication: DEPRESSION
     Dosage: 20 MG (20 MG, 1 IN 1 D), ORAL
     Route: 048
     Dates: start: 20080902, end: 20080915

REACTIONS (8)
  - BRONCHITIS [None]
  - DRY EYE [None]
  - INFLUENZA LIKE ILLNESS [None]
  - OCULAR HYPERAEMIA [None]
  - PNEUMONIA [None]
  - POLYMYALGIA RHEUMATICA [None]
  - POSTNASAL DRIP [None]
  - RASH [None]
